FAERS Safety Report 19066260 (Version 1)
Quarter: 2021Q1

REPORT INFORMATION
  Report Type: Other
  Country: CA (occurrence: CA)
  Receive Date: 20210328
  Receipt Date: 20210328
  Transmission Date: 20210420
  Serious: Yes (Other)
  Sender: FDA-Public Use
  Company Number: CA-GLENMARK PHARMACEUTICALS-2021GMK052933

PATIENT

DRUGS (2)
  1. ZOPICLONE [Concomitant]
     Active Substance: ZOPICLONE
     Indication: PRODUCT USED FOR UNKNOWN INDICATION
     Dosage: UNK
     Route: 065
  2. GABAPENTIN. [Suspect]
     Active Substance: GABAPENTIN
     Indication: INSOMNIA
     Dosage: 100 MILLIGRAM, OD (1 EVERY 1 DAYS)
     Route: 048

REACTIONS (5)
  - Self-injurious ideation [Recovered/Resolved]
  - Product use in unapproved indication [Unknown]
  - Off label use [Unknown]
  - Intrusive thoughts [Recovered/Resolved]
  - Thinking abnormal [Recovered/Resolved]
